FAERS Safety Report 5273756-6 (Version None)
Quarter: 2007Q1

REPORT INFORMATION
  Report Type: 
  Country: None (occurrence: None)
  Receive Date: 20070323
  Receipt Date: 20070312
  Transmission Date: 20070707
  Serious: Yes (Other)
  Sender: FDA-Public Use
  Company Number: US-SANOFI-SYNTHELABO-A03200702064

PATIENT
  Sex: Female

DRUGS (2)
  1. ABILIFY [Concomitant]
     Dosage: UNK
     Route: 065
  2. AMBIEN [Suspect]
     Indication: INSOMNIA
     Dosage: 1 A DAY UNK
     Route: 048
     Dates: start: 20060101, end: 20060204

REACTIONS (3)
  - AMNESIA [None]
  - IMPAIRED DRIVING ABILITY [None]
  - OVERDOSE [None]
